FAERS Safety Report 12486699 (Version 1)
Quarter: 2016Q2

REPORT INFORMATION
  Report Type: Other
  Country: US (occurrence: US)
  Receive Date: 20160621
  Receipt Date: 20160621
  Transmission Date: 20160815
  Serious: Yes (Hospitalization)
  Sender: FDA-Public Use
  Company Number: US-HLSUS-2016-US-000231

PATIENT
  Age: 26 Year
  Sex: Male

DRUGS (1)
  1. CLOZARIL [Suspect]
     Active Substance: CLOZAPINE
     Indication: SCHIZOPHRENIA
     Dosage: 12.5 QD
     Route: 048

REACTIONS (6)
  - Pneumonia aspiration [Unknown]
  - Peptostreptococcus infection [Unknown]
  - Salivary hypersecretion [Unknown]
  - Tachycardia [Unknown]
  - Sedation [Unknown]
  - Headache [Unknown]
